FAERS Safety Report 15887715 (Version 1)
Quarter: 2019Q1

REPORT INFORMATION
  Report Type: Spontaneous
  Country: US (occurrence: US)
  Receive Date: 20190108
  Receipt Date: 20190108
  Transmission Date: 20190417
  Serious: Yes (Disabling)
  Sender: FDA-Public Use
  Company Number: None

PATIENT
  Age: 32 Year
  Sex: Female
  Weight: 76.5 kg

DRUGS (4)
  1. VYVANSE [Concomitant]
     Active Substance: LISDEXAMFETAMINE DIMESYLATE
  2. LEVOFLOXACIN. [Suspect]
     Active Substance: LEVOFLOXACIN
     Indication: BRONCHITIS BACTERIAL
     Dosage: ?          QUANTITY:7 DF DOSAGE FORM;?
     Route: 048
     Dates: start: 20170304, end: 20170311
  3. PREDNISONE. [Suspect]
     Active Substance: PREDNISONE
  4. FERRITIN [Concomitant]
     Active Substance: FERRITIN

REACTIONS (10)
  - Cognitive disorder [None]
  - Memory impairment [None]
  - Tongue blistering [None]
  - Neuropsychiatric symptoms [None]
  - Seizure like phenomena [None]
  - Insomnia [None]
  - Encephalitis toxic [None]
  - Disturbance in attention [None]
  - Anxiety [None]
  - Palpitations [None]

NARRATIVE: CASE EVENT DATE: 20170304
